FAERS Safety Report 4583155-8 (Version None)
Quarter: 2005Q1

REPORT INFORMATION
  Report Type: 
  Country: None (occurrence: None)
  Receive Date: 20050125
  Receipt Date: 20041112
  Transmission Date: 20050727
  Serious: No
  Sender: FDA-Public Use
  Company Number: USA041184016

PATIENT
  Age: 71 Year
  Sex: Female

DRUGS (1)
  1. FORTEO (TERIPARATIDE) [Suspect]
     Dates: start: 20040601, end: 20041008

REACTIONS (1)
  - MYALGIA [None]
